FAERS Safety Report 7190893-X (Version None)
Quarter: 2010Q4

REPORT INFORMATION
  Report Type: 
  Country: None (occurrence: None)
  Receive Date: 20101222
  Receipt Date: 20101222
  Transmission Date: 20110411
  Serious: Yes (Life-Threatening, Hospitalization, Disabling, Other)
  Sender: FDA-Public Use
  Company Number: None

PATIENT
  Sex: Female
  Weight: 61.6892 kg

DRUGS (3)
  1. PROPOXYPHENE HCL AND ACETAMINOPHEN [Suspect]
     Indication: ARTHRITIS
     Dosage: 100-650 MG TB 4X DAILY
     Dates: start: 19940101, end: 20080401
  2. PROPOXYPHENE HCL AND ACETAMINOPHEN [Suspect]
     Indication: FIBROMYALGIA
     Dosage: 100-650 MG TB 4X DAILY
     Dates: start: 19940101, end: 20080401
  3. DARVOCET A500 [Suspect]

REACTIONS (4)
  - ANXIETY [None]
  - ARRHYTHMIA [None]
  - HEART RATE INCREASED [None]
  - PANIC ATTACK [None]
